FAERS Safety Report 6558570-3 (Version None)
Quarter: 2010Q1

REPORT INFORMATION
  Report Type: 
  Country: None (occurrence: None)
  Receive Date: 20100129
  Receipt Date: 20091102
  Transmission Date: 20100710
  Serious: No
  Sender: FDA-Public Use
  Company Number: A0806759A

PATIENT
  Age: 8 Year
  Sex: Male

DRUGS (2)
  1. MEPRON [Suspect]
     Dosage: .5TSP TWICE PER DAY
     Route: 048
     Dates: start: 20080901
  2. ZITHROMAX [Concomitant]

REACTIONS (2)
  - DYSURIA [None]
  - PRODUCT QUALITY ISSUE [None]
